FAERS Safety Report 9707766 (Version 1)
Quarter: 2013Q4

REPORT INFORMATION
  Report Type: Spontaneous
  Country: US (occurrence: US)
  Receive Date: 20131125
  Receipt Date: 20131125
  Transmission Date: 20140711
  Serious: No
  Sender: FDA-Public Use
  Company Number: US-B.I. PHARMACEUTICALS,INC./RIDGEFIELD-2013-BI-37353BP

PATIENT
  Sex: Male

DRUGS (1)
  1. COMBIVENT [Suspect]

REACTIONS (3)
  - Dizziness [Unknown]
  - Headache [Unknown]
  - Sensory disturbance [Unknown]
